FAERS Safety Report 6448230-1 (Version None)
Quarter: 2009Q4

REPORT INFORMATION
  Report Type: 
  Country: None (occurrence: None)
  Receive Date: 20091117
  Receipt Date: 20091106
  Transmission Date: 20100525
  Serious: Yes (Other)
  Sender: FDA-Public Use
  Company Number: 2009SP034833

PATIENT
  Age: 29 Year
  Sex: Female
  Weight: 65 kg

DRUGS (3)
  1. DISOPHROL RETARD (DEXBROMPHENIRAMINE MALEATE/ PSEUDOEPHEDRINE SULFATE) [Suspect]
     Indication: NASOPHARYNGITIS
     Dosage: 1 DF; ; PO
     Route: 048
     Dates: start: 20091011, end: 20091011
  2. RUTINACEA [Concomitant]
  3. POLOPIRYNA S [Concomitant]

REACTIONS (3)
  - BALANCE DISORDER [None]
  - DIPLOPIA [None]
  - SYNCOPE [None]
